FAERS Safety Report 9995316 (Version 1)
Quarter: 2014Q1

REPORT INFORMATION
  Report Type: Spontaneous
  Country: US (occurrence: None)
  Receive Date: 20140214
  Receipt Date: 20140214
  Transmission Date: 20141002
  Serious: No
  Sender: FDA-Public Use
  Company Number: US-013962

PATIENT
  Sex: Female

DRUGS (1)
  1. PICO-SALAX (NOT SPECIFIED) [Suspect]
     Indication: BOWEL PREPARATION
     Dosage: (1ST DOSE AT 6 PM ON 25NOV2013; 2ND DOSE AT 9 AM ON 26NOV2013)
     Route: 048
     Dates: start: 20131125, end: 20131126

REACTIONS (1)
  - Drug ineffective [None]
